FAERS Safety Report 21846778 (Version 1)
Quarter: 2023Q1

REPORT INFORMATION
  Report Type: Report from Study
  Country: US (occurrence: US)
  Receive Date: 20230111
  Receipt Date: 20230111
  Transmission Date: 20230417
  Serious: No
  Sender: FDA-Public Use
  Company Number: US-ABBVIE-4234837

PATIENT
  Sex: Female

DRUGS (2)
  1. HUMIRA [Suspect]
     Active Substance: ADALIMUMAB
     Indication: Hidradenitis
     Route: 058
  2. TOLSEROL [Concomitant]
     Active Substance: MEPHENESIN
     Indication: Product used for unknown indication

REACTIONS (2)
  - Bronchitis [Recovering/Resolving]
  - COVID-19 [Recovered/Resolved]
